FAERS Safety Report 8286446-2 (Version None)
Quarter: 2012Q2

REPORT INFORMATION
  Report Type: 
  Country: None (occurrence: None)
  Receive Date: 20120411
  Receipt Date: 20120411
  Transmission Date: 20120825
  Serious: Yes (Disabling, Other)
  Sender: FDA-Public Use
  Company Number: None

PATIENT
  Age: 47 Year
  Sex: Male
  Weight: 70.3075 kg

DRUGS (2)
  1. ADVAIR HFA [Suspect]
     Indication: CHRONIC OBSTRUCTIVE PULMONARY DISEASE
     Dates: start: 20110101, end: 20111101
  2. SPIRIVA [Suspect]
     Indication: CHRONIC OBSTRUCTIVE PULMONARY DISEASE
     Dosage: 18 MCG CAPS
     Dates: start: 20100701, end: 20111101

REACTIONS (7)
  - CYST [None]
  - HYPOTHYROIDISM [None]
  - BASEDOW'S DISEASE [None]
  - SINUSITIS [None]
  - DIPLOPIA [None]
  - CANDIDIASIS [None]
  - GASTRIC DISORDER [None]
